FAERS Safety Report 8622588-7 (Version None)
Quarter: 2012Q3

REPORT INFORMATION
  Report Type: 
  Country: None (occurrence: None)
  Receive Date: 20120810
  Receipt Date: 20120727
  Transmission Date: 20120928
  Serious: Yes (Death, Other)
  Sender: FDA-Public Use
  Company Number: TPA2012A03612

PATIENT
  Age: 72 Year
  Sex: Male

DRUGS (8)
  1. CAPTOPRIL [Concomitant]
  2. METFFORMIN HYDROCHLORIDE [Concomitant]
  3. PLENDIL [Concomitant]
  4. SYMLIN [Concomitant]
  5. ACTOS [Suspect]
     Indication: TYPE 2 DIABETES MELLITUS
     Dosage: 45 MG
     Dates: start: 20051104, end: 20100929
  6. LANOXIN [Concomitant]
  7. FUROSEMIDE [Concomitant]
  8. GLIPIZIDE [Concomitant]

REACTIONS (1)
  - BLADDER CANCER [None]
